FAERS Safety Report 7640201-2 (Version None)
Quarter: 2011Q3

REPORT INFORMATION
  Report Type: 
  Country: None (occurrence: None)
  Receive Date: 20110728
  Receipt Date: 20110701
  Transmission Date: 20111222
  Serious: No
  Sender: FDA-Public Use
  Company Number: US-BAYER-2011-058897

PATIENT
  Sex: Female

DRUGS (2)
  1. TYLENOL W/ CODEINE NO. 3 [Concomitant]
     Indication: MUSCULOSKELETAL PAIN
  2. ALEVE (CAPLET) [Suspect]
     Indication: MUSCULOSKELETAL PAIN
     Route: 048

REACTIONS (1)
  - NAUSEA [None]
